FAERS Safety Report 8926396 (Version 1)
Quarter: 2012Q4

REPORT INFORMATION
  Report Type: Report from Study
  Country: JP (occurrence: JP)
  Receive Date: 20121127
  Receipt Date: 20121127
  Transmission Date: 20130627
  Serious: Yes (Hospitalization)
  Sender: FDA-Public Use
  Company Number: JP-GLAXOSMITHKLINE-B0847597A

PATIENT
  Age: 68 Year
  Sex: Male
  Weight: 53.1 kg

DRUGS (11)
  1. LAPATINIB [Suspect]
     Indication: PRODUCT USED FOR UNKNOWN INDICATION
     Route: 048
     Dates: start: 20091019
  2. PACLITAXEL [Suspect]
     Indication: PRODUCT USED FOR UNKNOWN INDICATION
     Dates: start: 20091020
  3. CAPECITABINE [Suspect]
     Indication: GASTRIC CANCER
     Route: 048
     Dates: start: 20081119
  4. TRASTUZUMAB [Suspect]
     Indication: GASTRIC CANCER
     Route: 042
     Dates: start: 20081119
  5. CISPLATIN [Suspect]
     Indication: GASTRIC CANCER
     Route: 042
     Dates: start: 20081119
  6. BETAMETHASONE [Concomitant]
     Dosage: 50MG per day
     Dates: start: 20091020
  7. GRANISETRON [Concomitant]
     Dosage: 3MG per day
     Dates: start: 20091020
  8. URSODEOXYCHOLIC ACID [Concomitant]
     Dosage: 300MG per day
     Dates: start: 20081126
  9. LANSOPRAZOLE [Concomitant]
     Dosage: 15MG per day
  10. FAMOTIDINE [Concomitant]
     Dosage: 20MG per day
     Dates: start: 20091020
  11. DEXAMETHASONE PHOSPHATE [Concomitant]
     Dosage: 8MG per day
     Dates: start: 20091020

REACTIONS (3)
  - Leukopenia [Recovered/Resolved]
  - Neutropenia [Recovered/Resolved]
  - Decreased appetite [Recovered/Resolved]
